FAERS Safety Report 19718422 (Version 1)
Quarter: 2021Q3

REPORT INFORMATION
  Report Type: Spontaneous
  Country: US (occurrence: US)
  Receive Date: 20210818
  Receipt Date: 20210818
  Transmission Date: 20211014
  Serious: No
  Sender: FDA-Public Use
  Company Number: None

PATIENT
  Age: 12 Year
  Sex: Female
  Weight: 47.1 kg

DRUGS (4)
  1. ONDANSETRON [Suspect]
     Active Substance: ONDANSETRON
     Route: 040
     Dates: start: 20210706, end: 20210706
  2. DEXAMETHASONE. [Suspect]
     Active Substance: DEXAMETHASONE
     Route: 040
     Dates: start: 20210706, end: 20210706
  3. DIPHENHYDRAMINE 50MG/ML [Concomitant]
     Active Substance: DIPHENHYDRAMINE
     Dates: start: 20210706, end: 20210706
  4. EPINEPHRINE 0.1MG [Concomitant]
     Dates: start: 20210706, end: 20210706

REACTIONS (1)
  - Urticaria [None]

NARRATIVE: CASE EVENT DATE: 20210706
